FAERS Safety Report 11981461 (Version 2)
Quarter: 2016Q2

REPORT INFORMATION
  Report Type: Report from Study
  Country: US (occurrence: US)
  Receive Date: 20160130
  Receipt Date: 20160513
  Transmission Date: 20160815
  Serious: No
  Sender: FDA-Public Use
  Company Number: PHEH2016US002321

PATIENT
  Sex: Female

DRUGS (1)
  1. NEORAL [Suspect]
     Active Substance: CYCLOSPORINE
     Indication: RENAL DISORDER
     Dosage: 125 MG, BID
     Route: 048
     Dates: start: 20041228

REACTIONS (1)
  - Off label use [Not Recovered/Not Resolved]
